FAERS Safety Report 8120720-5 (Version None)
Quarter: 2012Q1

REPORT INFORMATION
  Report Type: 
  Country: None (occurrence: None)
  Receive Date: 20120207
  Receipt Date: 20120126
  Transmission Date: 20120608
  Serious: Yes (Other)
  Sender: FDA-Public Use
  Company Number: BR-ABBOTT-12P-020-0900686-00

PATIENT
  Age: 48 Year
  Sex: Female

DRUGS (6)
  1. BIPERIDEN HYDROCHLORIDE TAB [Suspect]
     Indication: PARKINSONISM
  2. RISPERIDONE [Concomitant]
  3. AZATHIOPRINE [Concomitant]
     Indication: PEMPHIGUS
  4. DEFLAZACORT [Concomitant]
     Indication: PEMPHIGUS
  5. RISPERIDONE [Concomitant]
     Indication: MANIA
     Dosage: 4 MG DAILY
  6. VALPROIC ACID [Concomitant]
     Indication: BIPOLAR I DISORDER
     Dosage: 1500 MG DAILY

REACTIONS (1)
  - PEMPHIGUS [None]
